FAERS Safety Report 4629403-7 (Version None)
Quarter: 2005Q2

REPORT INFORMATION
  Report Type: 
  Country: None (occurrence: None)
  Receive Date: 20050405
  Receipt Date: 20050323
  Transmission Date: 20051028
  Serious: Yes (Hospitalization)
  Sender: FDA-Public Use
  Company Number: DSA_26194_2005

PATIENT
  Age: 71 Year
  Sex: Female

DRUGS (2)
  1. RENIVACE [Suspect]
     Indication: HYPERTENSION
     Dosage: 10 MG QD PO
     Route: 048
     Dates: start: 20050220, end: 20050322
  2. PANALDINE [Suspect]
     Indication: STENT PLACEMENT
     Dosage: 200 MG QD PO
     Dates: start: 20050220, end: 20050308

REACTIONS (1)
  - WHITE BLOOD CELL COUNT DECREASED [None]
